FAERS Safety Report 9752944 (Version 1)
Quarter: 2013Q4

REPORT INFORMATION
  Report Type: Spontaneous
  Country: US (occurrence: None)
  Receive Date: 20131212
  Receipt Date: 20131212
  Transmission Date: 20140711
  Serious: No
  Sender: FDA-Public Use
  Company Number: None

PATIENT
  Age: 65 Year
  Sex: Male
  Weight: 100 kg

DRUGS (3)
  1. CHLORHEXIDINE GLUCONATE [Suspect]
     Indication: LOCALISED INFECTION
     Dosage: 15ML TWICE DAILY ORA-SWISH AND EXPECTORATE
     Route: 048
     Dates: start: 20130912, end: 20130920
  2. CHLORHEXIDINE GLUCONATE [Suspect]
     Indication: GINGIVAL DISORDER
     Dosage: 15ML TWICE DAILY ORA-SWISH AND EXPECTORATE
     Route: 048
     Dates: start: 20130912, end: 20130920
  3. CHLORHEXIDINE GLUCONATE [Suspect]
     Indication: LACERATION
     Dosage: 15ML TWICE DAILY ORA-SWISH AND EXPECTORATE
     Route: 048
     Dates: start: 20130912, end: 20130920

REACTIONS (2)
  - Petechiae [None]
  - Anxiety [None]
